FAERS Safety Report 9251339 (Version 1)
Quarter: 2013Q1

REPORT INFORMATION
  Report Type: Spontaneous
  Country: US (occurrence: None)
  Receive Date: 20130305
  Receipt Date: 20130305
  Transmission Date: 20140127
  Serious: Yes (Other)
  Sender: FDA-Public Use
  Company Number: 163-21880-12082396

PATIENT
  Age: 68 Year
  Sex: Male
  Weight: 79.38 kg

DRUGS (9)
  1. REVLIMID [Suspect]
     Indication: PLASMA CELL MYELOMA
     Dosage: 14 IN 21 D
     Route: 048
     Dates: start: 20120619
  2. VALCADE, NOT PROVIDED MILLENNIUM [Suspect]
     Dates: start: 201206
  3. DEXAMETHASONE (DEXAMETHASONE) [Concomitant]
  4. FISH OIL (FISH OIL) [Concomitant]
  5. HYDROCODONE / APAP (VICODIN) [Concomitant]
  6. IRON (IRON) [Concomitant]
  7. LEVOTHYROXINE (LEVOTHYROXINE) [Concomitant]
  8. LYSINE (LYSINE) [Concomitant]
  9. VITAMIN B-6 (PYRIDOXINE HYDROCHLORIDE) [Concomitant]

REACTIONS (1)
  - Neuropathy peripheral [None]
